FAERS Safety Report 9082237 (Version 3)
Quarter: 2013Q2

REPORT INFORMATION
  Report Type: Spontaneous
  Country: US (occurrence: US)
  Receive Date: 20130218
  Receipt Date: 20130419
  Transmission Date: 20140414
  Serious: No
  Sender: FDA-Public Use
  Company Number: US-PFIZER INC-2013060762

PATIENT
  Age: 83 Year
  Sex: Female

DRUGS (1)
  1. LYRICA [Suspect]
     Indication: GLOSSODYNIA
     Dosage: UNK MG, 2X/DAY
     Route: 048

REACTIONS (6)
  - Dry mouth [Unknown]
  - Tongue disorder [Unknown]
  - Glossodynia [Unknown]
  - Off label use [Unknown]
  - Anxiety [Unknown]
  - Insomnia [Unknown]
